FAERS Safety Report 15111734 (Version 1)
Quarter: 2018Q3

REPORT INFORMATION
  Report Type: Spontaneous
  Country: TR (occurrence: TR)
  Receive Date: 20180705
  Receipt Date: 20180705
  Transmission Date: 20181010
  Serious: Yes (Other)
  Sender: FDA-Public Use
  Company Number: TR-ASTRAZENECA-2018SE85780

PATIENT
  Sex: Male

DRUGS (3)
  1. SYMBICORT [Suspect]
     Active Substance: BUDESONIDE\FORMOTEROL FUMARATE DIHYDRATE
     Indication: DYSPNOEA
     Dosage: 320/9 MCG TWICE A DAY
     Route: 055
     Dates: start: 201806, end: 20180621
  2. SYMBICORT [Suspect]
     Active Substance: BUDESONIDE\FORMOTEROL FUMARATE DIHYDRATE
     Indication: PRODUCTIVE COUGH
     Dosage: 320/9 MCG TWICE A DAY
     Route: 055
     Dates: start: 201806, end: 20180621
  3. MULTICOLD [Concomitant]
     Dates: start: 201806

REACTIONS (4)
  - Anxiety [Recovered/Resolved]
  - Throat tightness [Recovered/Resolved]
  - Suicidal ideation [Recovered/Resolved]
  - Pruritus generalised [Recovered/Resolved]

NARRATIVE: CASE EVENT DATE: 201806
